FAERS Safety Report 4436653-1 (Version None)
Quarter: 2004Q3

REPORT INFORMATION
  Report Type: 
  Country: None (occurrence: None)
  Receive Date: 20040830
  Receipt Date: 20040728
  Transmission Date: 20050211
  Serious: No
  Sender: FDA-Public Use
  Company Number: US-BRISTOL-MYERS SQUIBB COMPANY-12653473

PATIENT
  Age: 32 Year
  Sex: Female
  Weight: 59 kg

DRUGS (3)
  1. ABILIFY [Suspect]
     Indication: AGITATION
     Route: 048
  2. LEXAPRO [Concomitant]
  3. NEURONTIN [Concomitant]

REACTIONS (2)
  - BREAST PAIN [None]
  - HYPERTROPHY BREAST [None]
